FAERS Safety Report 12310576 (Version 2)
Quarter: 2016Q2

REPORT INFORMATION
  Report Type: Spontaneous
  Country: DE (occurrence: DE)
  Receive Date: 20160427
  Receipt Date: 20160509
  Transmission Date: 20160815
  Serious: Yes (Hospitalization)
  Sender: FDA-Public Use
  Company Number: DE-SA-2016SA080033

PATIENT
  Age: 50 Year
  Sex: Female

DRUGS (3)
  1. CORTISONE [Suspect]
     Active Substance: CORTISONE\HYDROCORTISONE
     Indication: SWELLING FACE
     Route: 065
     Dates: start: 201604
  2. AUBAGIO [Suspect]
     Active Substance: TERIFLUNOMIDE
     Indication: MULTIPLE SCLEROSIS
     Route: 048
     Dates: start: 20160321, end: 20160418
  3. CORTISONE [Suspect]
     Active Substance: CORTISONE\HYDROCORTISONE
     Indication: ERYTHEMA
     Route: 065
     Dates: start: 201604

REACTIONS (10)
  - Swelling face [Recovered/Resolved]
  - Erythema [Recovered/Resolved]
  - Eyelid oedema [Unknown]
  - Pruritus [Unknown]
  - Blood pressure increased [Recovering/Resolving]
  - Angioedema [Not Recovered/Not Resolved]
  - Dermatitis allergic [Not Recovered/Not Resolved]
  - Urticaria [Not Recovered/Not Resolved]
  - Hypertensive crisis [Not Recovered/Not Resolved]
  - Tachycardia [Unknown]

NARRATIVE: CASE EVENT DATE: 201604
